FAERS Safety Report 23476644 (Version 1)
Quarter: 2024Q1

REPORT INFORMATION
  Report Type: Report from Study
  Country: US (occurrence: US)
  Receive Date: 20240204
  Receipt Date: 20240204
  Transmission Date: 20240410
  Serious: No
  Sender: FDA-Public Use
  Company Number: US-EXELIXIS-CABO-23063750

PATIENT
  Age: 61 Year
  Sex: Male

DRUGS (3)
  1. CABOMETYX [Suspect]
     Active Substance: CABOZANTINIB S-MALATE
     Indication: Renal cancer
     Dosage: 40 MG, QOD (EVERY OTHER DAY)
     Route: 048
  2. CABOMETYX [Suspect]
     Active Substance: CABOZANTINIB S-MALATE
     Dosage: 40 MG, EVERY 3RD DAY FOR 2 WEEKS AND WILL THEN GO TO EVERY OTHER DAY FOR ANOTHER 2 WEEKS TO ONE MONT
     Route: 048
  3. CABOMETYX [Suspect]
     Active Substance: CABOZANTINIB S-MALATE
     Dosage: 40 MG, QOD (EVERY OTHER DAY)
     Route: 048

REACTIONS (4)
  - Feeling abnormal [Unknown]
  - Fatigue [Unknown]
  - Dyspnoea [Unknown]
  - Inappropriate schedule of product administration [Unknown]

NARRATIVE: CASE EVENT DATE: 20230627
